FAERS Safety Report 8608749-1 (Version None)
Quarter: 2012Q3

REPORT INFORMATION
  Report Type: 
  Country: None (occurrence: None)
  Receive Date: 20120821
  Receipt Date: 20120809
  Transmission Date: 20120928
  Serious: No
  Sender: FDA-Public Use
  Company Number: US-ASTRAZENECA-2012SE55677

PATIENT
  Age: 72 Year
  Sex: Male
  Weight: 83.9 kg

DRUGS (4)
  1. MEDICATIONS FOR HIGH BLOOD PRESSURE [Concomitant]
     Indication: HYPERTENSION
  2. SYMBICORT [Suspect]
     Indication: DYSPNOEA
     Dosage: 160/4.5 MCG, 2 INHALATIONS, TWICE DAILY
     Route: 055
  3. MEDICATIONS FOR ACID REFLUX [Concomitant]
     Indication: GASTROOESOPHAGEAL REFLUX DISEASE
  4. SYMBICORT [Suspect]
     Indication: MULTIPLE ALLERGIES
     Dosage: 160/4.5 MCG, 2 INHALATIONS, TWICE DAILY
     Route: 055

REACTIONS (9)
  - DYSPHAGIA [None]
  - DRY THROAT [None]
  - SALIVARY HYPERSECRETION [None]
  - DYSPNOEA [None]
  - OFF LABEL USE [None]
  - MEMORY IMPAIRMENT [None]
  - HEARING IMPAIRED [None]
  - NERVOUSNESS [None]
  - DRUG DOSE OMISSION [None]
